FAERS Safety Report 9486287 (Version 4)
Quarter: 2013Q4

REPORT INFORMATION
  Report Type: Spontaneous
  Country: US (occurrence: US)
  Receive Date: 20130829
  Receipt Date: 20131021
  Transmission Date: 20140711
  Serious: Yes (Hospitalization, Other)
  Sender: FDA-Public Use
  Company Number: US-PFIZER INC-2013247351

PATIENT
  Age: 66 Year
  Sex: Male
  Weight: 84.54 kg

DRUGS (12)
  1. SUTENT [Suspect]
     Indication: METASTATIC RENAL CELL CARCINOMA
     Dosage: 50 MG, CYCLIC
     Dates: start: 201306, end: 20130620
  2. SUTENT [Suspect]
     Dosage: 50 MG, QOD FOR 2 WEEKS ON AND 1 WEEK OFF
  3. PROCRIT [Concomitant]
     Indication: ANAEMIA
  4. METHOTREXATE [Concomitant]
     Indication: RHEUMATOID ARTHRITIS
     Dosage: .5 MG, (AS DIRECTED OR ONCE A WEEK)
  5. PLAQUENIL [Concomitant]
     Indication: RHEUMATOID ARTHRITIS
     Dosage: 200 MG, 1X/DAY
  6. METFORMIN [Concomitant]
     Indication: TYPE 2 DIABETES MELLITUS
     Dosage: 850 MG, 2X/DAY
  7. ZOCOR [Concomitant]
     Dosage: 80 MG, 1X/DAY
  8. LISINOPRIL [Concomitant]
     Dosage: 10 MG,  (TAKE 3 ONCE DAILY)
  9. LORAZEPAM [Concomitant]
     Dosage: UNK
  10. VITAMIN D [Concomitant]
     Dosage: UNK, ONCE DAILY
     Route: 048
  11. ASPIRIN [Concomitant]
     Dosage: 325 MG, 1X/DAY
  12. PRILOSEC [Concomitant]
     Dosage: 20 MG, 1X/DAY

REACTIONS (4)
  - Coronary artery disease [Unknown]
  - Myocardial infarction [Unknown]
  - Disease progression [Unknown]
  - Metastatic renal cell carcinoma [Unknown]
